FAERS Safety Report 11335765 (Version 1)
Quarter: 2015Q3

REPORT INFORMATION
  Report Type: Spontaneous
  Country: US (occurrence: None)
  Receive Date: 20150731
  Receipt Date: 20150731
  Transmission Date: 20151125
  Serious: Yes (Hospitalization)
  Sender: FDA-Public Use
  Company Number: None

PATIENT
  Age: 77 Year
  Sex: Male
  Weight: 81.9 kg

DRUGS (3)
  1. WARFARIN [Suspect]
     Active Substance: WARFARIN
     Indication: CEREBROVASCULAR ACCIDENT
     Dates: start: 20061030
  2. WARFARIN [Suspect]
     Active Substance: WARFARIN
     Indication: HYPERCOAGULATION
     Dates: start: 20061030
  3. WARFARIN [Suspect]
     Active Substance: WARFARIN
     Indication: DEEP VEIN THROMBOSIS
     Dates: start: 20061030

REACTIONS (2)
  - Gastrointestinal haemorrhage [None]
  - International normalised ratio abnormal [None]

NARRATIVE: CASE EVENT DATE: 20100719
